FAERS Safety Report 8096749-2 (Version None)
Quarter: 2012Q1

REPORT INFORMATION
  Report Type: 
  Country: None (occurrence: None)
  Receive Date: 20120129
  Receipt Date: 20111116
  Transmission Date: 20120608
  Serious: No
  Sender: FDA-Public Use
  Company Number: US-ABBOTT-11P-163-0874824-00

PATIENT
  Age: 76 Year
  Sex: Female

DRUGS (5)
  1. RAMIPRIL [Concomitant]
     Indication: DIABETES MELLITUS
  2. HUMIRA [Suspect]
     Indication: PSORIATIC ARTHROPATHY
     Dates: start: 20111016
  3. PANTOPRAZOLE [Concomitant]
     Indication: GASTROOESOPHAGEAL REFLUX DISEASE
     Dosage: DAILY
  4. LANTUS [Concomitant]
     Indication: DIABETES MELLITUS
     Dosage: DAILY
  5. RAMIPRIL [Concomitant]
     Indication: RENAL DISORDER
     Dosage: DAILY

REACTIONS (5)
  - INCORRECT STORAGE OF DRUG [None]
  - WRONG TECHNIQUE IN DRUG USAGE PROCESS [None]
  - DEVICE MALFUNCTION [None]
  - INJECTION SITE PAIN [None]
  - INCORRECT DOSE ADMINISTERED [None]
